FAERS Safety Report 21610281 (Version 1)
Quarter: 2022Q4

REPORT INFORMATION
  Report Type: Spontaneous
  Country: CN (occurrence: CN)
  Receive Date: 20221117
  Receipt Date: 20221117
  Transmission Date: 20230113
  Serious: Yes (Other)
  Sender: FDA-Public Use
  Company Number: CN-FreseniusKabi-FK202215659

PATIENT
  Age: 46 Year
  Sex: Female

DRUGS (1)
  1. INTRALIPID [Suspect]
     Active Substance: EGG PHOSPHOLIPIDS\GLYCERIN\SOYBEAN OIL
     Indication: Fasting
     Route: 041
     Dates: start: 20220807, end: 20220811

REACTIONS (1)
  - Phlebitis [Recovered/Resolved with Sequelae]

NARRATIVE: CASE EVENT DATE: 20220811
